FAERS Safety Report 21913686 (Version 1)
Quarter: 2023Q1

REPORT INFORMATION
  Report Type: Spontaneous
  Country: US (occurrence: US)
  Receive Date: 20230125
  Receipt Date: 20230125
  Transmission Date: 20230418
  Serious: No
  Sender: FDA-Public Use
  Company Number: US-ALLERGAN-2215562US

PATIENT
  Age: 59 Year
  Sex: Female

DRUGS (3)
  1. BOTOX [Suspect]
     Active Substance: ONABOTULINUMTOXINA
     Indication: Lip cosmetic procedure
     Dosage: UNK, SINGLE
     Dates: start: 202109, end: 202109
  2. BOTOX [Suspect]
     Active Substance: ONABOTULINUMTOXINA
     Indication: Skin wrinkling
     Dosage: UNK, SINGLE
     Dates: start: 202109, end: 202109
  3. UNSPECIFIED INGREDIENT [Suspect]
     Active Substance: UNSPECIFIED INGREDIENT
     Indication: Skin cosmetic procedure
     Dosage: UNK

REACTIONS (4)
  - Off label use [Unknown]
  - Product preparation issue [Unknown]
  - Therapeutic response shortened [Unknown]
  - Treatment failure [Unknown]

NARRATIVE: CASE EVENT DATE: 20211101
